FAERS Safety Report 6894567-1 (Version None)
Quarter: 2010Q3

REPORT INFORMATION
  Report Type: 
  Country: None (occurrence: None)
  Receive Date: 20100802
  Receipt Date: 20100720
  Transmission Date: 20110219
  Serious: Yes (Other)
  Sender: FDA-Public Use
  Company Number: PHHY2008CA28386

PATIENT
  Sex: Male

DRUGS (4)
  1. CLOZARIL [Suspect]
     Indication: SCHIZOPHRENIA
     Dosage: 900 MG
     Route: 048
     Dates: start: 20051001
  2. CLOZARIL [Suspect]
     Dosage: UNK
     Dates: start: 20060123
  3. VITAMIN A [Concomitant]
     Dosage: 1800 MG
  4. OLANZAPINE [Concomitant]

REACTIONS (4)
  - AGRANULOCYTOSIS [None]
  - MALNUTRITION [None]
  - NEUTROPHIL COUNT DECREASED [None]
  - WHITE BLOOD CELL COUNT DECREASED [None]
